FAERS Safety Report 4712947-7 (Version None)
Quarter: 2005Q3

REPORT INFORMATION
  Report Type: 
  Country: None (occurrence: None)
  Receive Date: 20050712
  Receipt Date: 20050712
  Transmission Date: 20060218
  Serious: Yes (Death)
  Sender: FDA-Public Use
  Company Number: None

PATIENT
  Sex: Male
  Weight: 52.8 kg

DRUGS (2)
  1. PACLITAXEL [Suspect]
     Indication: PULMONARY MASS
     Dosage: 200 MG/M2 IV OVER 3HR ON DAY 1, EVERY 21 DAYS X 6 CYCLES
     Route: 042
     Dates: start: 20030515
  2. CARBOPLATIN [Suspect]
     Dosage: AUC = 6 IV OVER 15-30 MIN ON DAY 1, EVERY 21 DAYS X 6 CYCLES
     Route: 042

REACTIONS (1)
  - RESPIRATORY ARREST [None]
